FAERS Safety Report 4553962-6 (Version None)
Quarter: 2005Q1

REPORT INFORMATION
  Report Type: 
  Country: None (occurrence: None)
  Receive Date: 20050118
  Receipt Date: 20050104
  Transmission Date: 20050727
  Serious: Yes (Death, Life-Threatening)
  Sender: FDA-Public Use
  Company Number: CA-JNJFOC-20041206767

PATIENT
  Sex: Female

DRUGS (5)
  1. REMICADE [Suspect]
     Indication: RHEUMATOID ARTHRITIS
     Dosage: LAST DOSE RECEIVED IN NOVEMBER 2004
     Route: 042
  2. METHOTREXATE [Concomitant]
  3. CALCIUM GLUCONATE [Concomitant]
  4. MAGNESIUM [Concomitant]
  5. PREDNISONE [Concomitant]

REACTIONS (2)
  - CARDIAC ARREST [None]
  - PNEUMONIA [None]
